FAERS Safety Report 25858169 (Version 1)
Quarter: 2025Q3

REPORT INFORMATION
  Report Type: Spontaneous
  Country: CA (occurrence: CA)
  Receive Date: 20250929
  Receipt Date: 20250929
  Transmission Date: 20251021
  Serious: Yes (Other)
  Sender: AUROBINDO
  Company Number: CA-AUROBINDO-AUR-APL-2025-048551

PATIENT
  Age: 7 Decade
  Sex: Female

DRUGS (5)
  1. PEMETREXED [Suspect]
     Active Substance: PEMETREXED
     Indication: Non-small cell lung cancer metastatic
     Route: 065
  2. PEMETREXED [Suspect]
     Active Substance: PEMETREXED
     Indication: Non-small cell lung cancer metastatic
     Route: 042
  3. CARBOPLATIN [Suspect]
     Active Substance: CARBOPLATIN
     Indication: Non-small cell lung cancer metastatic
     Route: 042
  4. NELVUTAMIG [Suspect]
     Active Substance: NELVUTAMIG
     Indication: Non-small cell lung cancer metastatic
     Route: 065
  5. OPDIVO [Suspect]
     Active Substance: NIVOLUMAB
     Indication: Non-small cell lung cancer metastatic
     Route: 065

REACTIONS (6)
  - Adrenal insufficiency [Unknown]
  - Body temperature decreased [Unknown]
  - Fatigue [Unknown]
  - Nausea [Unknown]
  - Neuralgia [Unknown]
  - Non-small cell lung cancer [Unknown]
